FAERS Safety Report 7079439-4 (Version None)
Quarter: 2010Q4

REPORT INFORMATION
  Report Type: 
  Country: None (occurrence: None)
  Receive Date: 20101022
  Receipt Date: 20101007
  Transmission Date: 20110411
  Serious: Yes (Death, Other)
  Sender: FDA-Public Use
  Company Number: 011510

PATIENT

DRUGS (6)
  1. BUSULFEX [Suspect]
     Indication: STEM CELL TRANSPLANT
  2. ARA-C (CYTARABINE) [Concomitant]
  3. CYCLOPHOSPHAMIDE [Concomitant]
  4. ATG(ANTILYMPHOCYTE IMMUNOGLOBULIN(HORSE) [Concomitant]
  5. CYCLOSPORINE [Concomitant]
  6. MYCOPHENOLATE MOFETIL [Concomitant]

REACTIONS (2)
  - LEUKAEMIA RECURRENT [None]
  - PNEUMONIA [None]
